FAERS Safety Report 9322641 (Version 1)
Quarter: 2013Q2

REPORT INFORMATION
  Report Type: Spontaneous
  Country: US (occurrence: US)
  Receive Date: 20130531
  Receipt Date: 20130531
  Transmission Date: 20140414
  Serious: No
  Sender: FDA-Public Use
  Company Number: US-TEVA-409367USA

PATIENT
  Age: 45 Year
  Sex: Female
  Weight: 48.58 kg

DRUGS (6)
  1. PLAN B ONE-STEP [Suspect]
     Indication: POST COITAL CONTRACEPTION
     Dosage: 1.5 MILLIGRAM DAILY;
     Route: 048
     Dates: start: 20130509, end: 20130509
  2. DILANTIN [Concomitant]
     Indication: CONVULSION
  3. LAMICTAL [Concomitant]
     Indication: CONVULSION
  4. KLONOPIN [Concomitant]
     Indication: ANXIETY
  5. SYNTHROID [Concomitant]
     Indication: HYPOTHYROIDISM
  6. PERCOCET [Concomitant]
     Indication: PAIN

REACTIONS (4)
  - Breast tenderness [Recovered/Resolved]
  - Metrorrhagia [Recovered/Resolved]
  - Pelvic pain [Recovered/Resolved]
  - Menstruation irregular [Not Recovered/Not Resolved]
